FAERS Safety Report 6398330-X (Version None)
Quarter: 2009Q4

REPORT INFORMATION
  Report Type: 
  Country: None (occurrence: None)
  Receive Date: 20091007
  Receipt Date: 20090925
  Transmission Date: 20100525
  Serious: Yes (Hospitalization)
  Sender: FDA-Public Use
  Company Number: GXKR2009JP10683

PATIENT
  Age: 74 Year
  Sex: Female

DRUGS (4)
  1. METHYLPREDNISOLONE 4MG TAB [Suspect]
     Indication: PERIPHERAL T-CELL LYMPHOMA UNSPECIFIED RECURRENT
     Dosage: 500 MG/KG (DAYS 1-5), INTRAVENOUS
     Route: 042
     Dates: start: 20070614
  2. ETOPOSIDE [Suspect]
     Indication: PERIPHERAL T-CELL LYMPHOMA UNSPECIFIED RECURRENT
     Dosage: 40 MG/M2 (DAYS 1-4),
     Dates: start: 20070614
  3. CYTARABINE [Suspect]
     Indication: PERIPHERAL T-CELL LYMPHOMA UNSPECIFIED RECURRENT
     Dosage: 2 G/M2 (DAY 5), INTRAVENOUS
     Route: 042
  4. CISPLATIN [Suspect]
     Indication: PERIPHERAL T-CELL LYMPHOMA UNSPECIFIED RECURRENT
     Dosage: 25 MG/M2, A 24-HOUR INFUSION 4 DAYS, IV INFUSION
     Route: 042
     Dates: start: 20070614

REACTIONS (5)
  - FATIGUE [None]
  - HEADACHE [None]
  - INAPPROPRIATE ANTIDIURETIC HORMONE SECRETION [None]
  - NAUSEA [None]
  - TUMOUR LYSIS SYNDROME [None]
